FAERS Safety Report 5637431-8 (Version None)
Quarter: 2008Q1

REPORT INFORMATION
  Report Type: 
  Country: None (occurrence: None)
  Receive Date: 20080225
  Receipt Date: 20080213
  Transmission Date: 20080703
  Serious: Yes (Other)
  Sender: FDA-Public Use
  Company Number: US-PFIZER INC-2008015781

PATIENT
  Sex: Female
  Weight: 48 kg

DRUGS (6)
  1. LYRICA [Suspect]
     Indication: NEURALGIA
  2. THEOPHYLLINE [Concomitant]
  3. REQUIP [Concomitant]
  4. ATENOLOL [Concomitant]
  5. NITROGLYCERIN [Concomitant]
  6. CALCIUM [Concomitant]

REACTIONS (3)
  - DYSPNOEA [None]
  - SWELLING [None]
  - WEIGHT DECREASED [None]
